FAERS Safety Report 5995044-2 (Version None)
Quarter: 2008Q4

REPORT INFORMATION
  Report Type: 
  Country: None (occurrence: None)
  Receive Date: 20081212
  Receipt Date: 20081027
  Transmission Date: 20090506
  Serious: No
  Sender: FDA-Public Use
  Company Number: US-ABBOTT-08P-163-0477882-00

PATIENT
  Sex: Female
  Weight: 95.34 kg

DRUGS (5)
  1. HUMIRA [Suspect]
     Indication: CROHN'S DISEASE
     Route: 058
     Dates: start: 20080721
  2. PREDNISONE TAB [Concomitant]
     Indication: DRUG USE FOR UNKNOWN INDICATION
  3. PREDNISONE TAB [Concomitant]
     Route: 048
  4. PREDNISONE TAB [Concomitant]
  5. PREDNISONE TAB [Concomitant]

REACTIONS (7)
  - ARTHRALGIA [None]
  - FISTULA DISCHARGE [None]
  - MIDDLE EAR EFFUSION [None]
  - MYALGIA [None]
  - PHARYNGEAL ERYTHEMA [None]
  - PYREXIA [None]
  - SINUS OPERATION [None]
